FAERS Safety Report 6717545-1 (Version None)
Quarter: 2010Q2

REPORT INFORMATION
  Report Type: 
  Country: None (occurrence: None)
  Receive Date: 20100507
  Receipt Date: 20100507
  Transmission Date: 20101027
  Serious: Yes (Life-Threatening, Hospitalization, Other)
  Sender: FDA-Public Use
  Company Number: None

PATIENT
  Sex: Male

DRUGS (3)
  1. PROGRAF [Suspect]
     Indication: RENAL TRANSPLANT
     Dosage: 6 MG BID PO
     Route: 048
     Dates: start: 20000101
  2. PROGRAF [Suspect]
     Indication: TRANSPLANT REJECTION
     Dosage: 6 MG BID PO
     Route: 048
     Dates: start: 20000101
  3. PROGRAF [Suspect]

REACTIONS (4)
  - DRUG LEVEL DECREASED [None]
  - HAEMODIALYSIS [None]
  - PRODUCT MEASURED POTENCY ISSUE [None]
  - RENAL FAILURE ACUTE [None]
